FAERS Safety Report 8548701-8 (Version None)
Quarter: 2012Q3

REPORT INFORMATION
  Report Type: 
  Country: None (occurrence: None)
  Receive Date: 20120720
  Receipt Date: 20120720
  Transmission Date: 20120928
  Serious: Yes (Hospitalization)
  Sender: FDA-Public Use
  Company Number: None

PATIENT
  Age: 59 Year
  Sex: Female
  Weight: 71.2147 kg

DRUGS (1)
  1. ANASTROZOLE [Suspect]
     Indication: BREAST CANCER
     Dosage: 1 PILL A DAY
     Dates: start: 20120429, end: 20120508

REACTIONS (8)
  - PRURITUS [None]
  - MUSCLE SPASMS [None]
  - ANAPHYLACTOID SHOCK [None]
  - MYALGIA [None]
  - ARTHRALGIA [None]
  - URTICARIA [None]
  - AUTOIMMUNE THYROIDITIS [None]
  - OEDEMA PERIPHERAL [None]
